FAERS Safety Report 13714535 (Version 2)
Quarter: 2017Q3

REPORT INFORMATION
  Report Type: Spontaneous
  Country: DE (occurrence: DE)
  Receive Date: 20170704
  Receipt Date: 20170921
  Transmission Date: 20171127
  Serious: Yes (Other)
  Sender: FDA-Public Use
  Company Number: DE-ABBVIE-17K-062-2028109-00

PATIENT
  Age: 48 Year
  Sex: Male
  Weight: 84 kg

DRUGS (12)
  1. HUMIRA [Suspect]
     Active Substance: ADALIMUMAB
     Indication: ANKYLOSING SPONDYLITIS
     Route: 058
     Dates: start: 200711, end: 200810
  2. HUMIRA [Suspect]
     Active Substance: ADALIMUMAB
     Dosage: REDUCED DOSE
     Route: 058
     Dates: start: 201609, end: 201609
  3. HUMIRA [Suspect]
     Active Substance: ADALIMUMAB
     Dosage: FULL DOSE
     Route: 058
     Dates: start: 201609, end: 201704
  4. PLEON RA [Suspect]
     Active Substance: SULFASALAZINE
     Indication: PRODUCT USED FOR UNKNOWN INDICATION
     Route: 065
     Dates: start: 201107, end: 201112
  5. ASPIRIN. [Concomitant]
     Active Substance: ASPIRIN
     Indication: PRODUCT USED FOR UNKNOWN INDICATION
  6. MTX [Suspect]
     Active Substance: METHOTREXATE SODIUM
     Indication: PRODUCT USED FOR UNKNOWN INDICATION
     Route: 048
     Dates: start: 200911, end: 201003
  7. ARAVA [Suspect]
     Active Substance: LEFLUNOMIDE
     Route: 065
     Dates: start: 201007, end: 201009
  8. ARAVA [Suspect]
     Active Substance: LEFLUNOMIDE
     Indication: PRODUCT USED FOR UNKNOWN INDICATION
     Route: 065
     Dates: start: 201004, end: 2010
  9. HUMIRA [Suspect]
     Active Substance: ADALIMUMAB
     Route: 058
     Dates: start: 201309, end: 201609
  10. HUMIRA [Suspect]
     Active Substance: ADALIMUMAB
     Route: 058
     Dates: start: 200812, end: 201303
  11. ENBREL [Suspect]
     Active Substance: ETANERCEPT
     Indication: PRODUCT USED FOR UNKNOWN INDICATION
     Route: 065
     Dates: start: 200709, end: 200710
  12. NOVAMINSULFONE [Concomitant]
     Indication: PRODUCT USED FOR UNKNOWN INDICATION

REACTIONS (32)
  - Myocarditis [Unknown]
  - Ejection fraction decreased [Unknown]
  - Dilatation atrial [Unknown]
  - Rash [Unknown]
  - Oedema peripheral [Recovered/Resolved]
  - Congestive cardiomyopathy [Unknown]
  - Fatigue [Unknown]
  - Dry skin [Unknown]
  - Spinal pain [Recovering/Resolving]
  - Cardiac failure [Not Recovered/Not Resolved]
  - Nuclear magnetic resonance imaging abnormal [Unknown]
  - Fatigue [Unknown]
  - Bone erosion [Unknown]
  - Arthritis [Unknown]
  - Osteoarthritis [Unknown]
  - Headache [Unknown]
  - Drug effect decreased [Recovered/Resolved]
  - Mitral valve incompetence [Unknown]
  - Arthralgia [Unknown]
  - Arrhythmia [Unknown]
  - Cardiomyopathy [Unknown]
  - Rheumatic disorder [Unknown]
  - Periarthritis [Unknown]
  - Depression [Unknown]
  - Asthenia [Unknown]
  - Ventricular extrasystoles [Unknown]
  - Eczema [Unknown]
  - Dyspnoea [Unknown]
  - Left ventricular dilatation [Unknown]
  - Cardiac failure chronic [Unknown]
  - Foot deformity [Unknown]
  - Diarrhoea [Unknown]

NARRATIVE: CASE EVENT DATE: 2007
